FAERS Safety Report 5478239-6 (Version None)
Quarter: 2007Q4

REPORT INFORMATION
  Report Type: 
  Country: None (occurrence: None)
  Receive Date: 20071005
  Receipt Date: 20070927
  Transmission Date: 20080405
  Serious: Yes (Other)
  Sender: FDA-Public Use
  Company Number: US-AVENTIS-200716954US

PATIENT
  Sex: Female

DRUGS (4)
  1. LANTUS [Suspect]
     Dosage: DOSE: 33-8
     Route: 051
     Dates: start: 20070401
  2. LANTUS [Suspect]
     Route: 051
     Dates: start: 20070901
  3. OPTICLIK (INSULIN INJECTION PEN) [Suspect]
     Dates: start: 20070401
  4. UNKNOWN DRUG [Concomitant]

REACTIONS (1)
  - HYPOGLYCAEMIC UNCONSCIOUSNESS [None]
